FAERS Safety Report 8583407 (Version 4)
Quarter: 2014Q4

REPORT INFORMATION
  Report Type: Spontaneous
  Country: US (occurrence: US)
  Receive Date: 20120529
  Receipt Date: 20141014
  Transmission Date: 20150529
  Serious: Yes (Hospitalization)
  Sender: FDA-Public Use
  Company Number: US-BAYER-2012-051629

PATIENT
  Age: 27 Year
  Sex: Female
  Weight: 58.96 kg

DRUGS (19)
  1. OMEPRAZOLE. [Concomitant]
     Active Substance: OMEPRAZOLE
     Dosage: 20 MG, UNK
     Dates: start: 20101124
  2. FAMOTIDINE. [Concomitant]
     Active Substance: FAMOTIDINE
     Dosage: 20 MG, UNK
     Dates: start: 20101124
  3. VICODIN [Concomitant]
     Active Substance: ACETAMINOPHEN\HYDROCODONE BITARTRATE
  4. ZYPREXA [Concomitant]
     Active Substance: OLANZAPINE
     Indication: BIPOLAR DISORDER
  5. NORCO [Concomitant]
     Active Substance: ACETAMINOPHEN\HYDROCODONE BITARTRATE
  6. PEPCID [Concomitant]
     Active Substance: FAMOTIDINE
  7. YAZ [Suspect]
     Active Substance: DROSPIRENONE\ETHINYL ESTRADIOL
     Dosage: UNK
     Dates: start: 20091219, end: 201010
  8. NAPROXEN. [Concomitant]
     Active Substance: NAPROXEN
  9. LAMOTRIGINE. [Concomitant]
     Active Substance: LAMOTRIGINE
  10. GEODON [Concomitant]
     Active Substance: ZIPRASIDONE HYDROCHLORIDE\ZIPRASIDONE MESYLATE
     Dosage: 100 MG, DAILY
  11. LEXAPRO [Concomitant]
     Active Substance: ESCITALOPRAM OXALATE
     Indication: DEPRESSION
  12. GIANVI [Suspect]
     Active Substance: DROSPIRENONE\ETHINYL ESTRADIOL
     Dosage: UNK
     Route: 048
     Dates: start: 20101025, end: 20101128
  13. PRILOSEC [Concomitant]
     Active Substance: OMEPRAZOLE MAGNESIUM
     Dosage: 20 MG, UNK
  14. ZIPRASIDONE [Concomitant]
     Active Substance: ZIPRASIDONE
  15. ABILIFY [Concomitant]
     Active Substance: ARIPIPRAZOLE
     Indication: BIPOLAR DISORDER
     Dosage: 15 MG, UNK
  16. MORPHINE [Concomitant]
     Active Substance: MORPHINE
     Indication: PAIN
  17. BENZTROPINE [Concomitant]
     Active Substance: BENZTROPINE
     Dosage: 1 MG, UNK
  18. IBORUFEN [Concomitant]
  19. ADVIL [Concomitant]
     Active Substance: IBUPROFEN

REACTIONS (6)
  - Pulmonary embolism [None]
  - Pain [None]
  - Chest pain [None]
  - Injury [None]
  - Mental disorder [None]
  - Fear of disease [None]

NARRATIVE: CASE EVENT DATE: 20101128
